FAERS Safety Report 17815931 (Version 1)
Quarter: 2020Q2

REPORT INFORMATION
  Report Type: Spontaneous
  Country: US (occurrence: US)
  Receive Date: 20200522
  Receipt Date: 20200522
  Transmission Date: 20200714
  Serious: Yes (Hospitalization)
  Sender: FDA-Public Use
  Company Number: None

PATIENT
  Age: 58 Year
  Sex: Female
  Weight: 105.7 kg

DRUGS (6)
  1. ALOXI [Suspect]
     Active Substance: PALONOSETRON HYDROCHLORIDE
     Dates: end: 20200413
  2. DOXORUBICIN [Concomitant]
     Active Substance: DOXORUBICIN
  3. DEXAMETHASONE. [Suspect]
     Active Substance: DEXAMETHASONE
     Dates: end: 20200416
  4. FOSAPREPITANT DIMEGLUMINE. [Suspect]
     Active Substance: FOSAPREPITANT DIMEGLUMINE
     Dates: end: 20200413
  5. OLANZAPINE. [Concomitant]
     Active Substance: OLANZAPINE
     Dates: end: 20200416
  6. CYCLOPHOSPHAMIDE. [Concomitant]
     Active Substance: CYCLOPHOSPHAMIDE

REACTIONS (6)
  - Pyrexia [None]
  - Sinus tachycardia [None]
  - Wound secretion [None]
  - Blood lactic acid increased [None]
  - Wound dehiscence [None]
  - Breast reconstruction [None]

NARRATIVE: CASE EVENT DATE: 20200511
